FAERS Safety Report 24560789 (Version 2)
Quarter: 2024Q4

REPORT INFORMATION
  Report Type: Spontaneous
  Country: US (occurrence: US)
  Receive Date: 20241029
  Receipt Date: 20241120
  Transmission Date: 20250115
  Serious: Yes (Hospitalization, Other)
  Sender: NOVO NORDISK
  Company Number: US-NOVOPROD-1256030

PATIENT
  Age: 38 Year
  Sex: Female

DRUGS (10)
  1. OZEMPIC [Suspect]
     Active Substance: SEMAGLUTIDE
     Indication: Obesity
     Dosage: 1 MG, QW
     Route: 058
     Dates: start: 20220323, end: 20220328
  2. OZEMPIC [Suspect]
     Active Substance: SEMAGLUTIDE
     Dosage: 2 MG, QW
     Route: 058
     Dates: start: 20220708, end: 20230622
  3. OZEMPIC [Suspect]
     Active Substance: SEMAGLUTIDE
     Indication: Type 2 diabetes mellitus
     Dosage: 0.5 MG, QW
     Route: 058
     Dates: start: 20211110, end: 20220316
  4. REGLAN [Concomitant]
     Active Substance: METOCLOPRAMIDE HYDROCHLORIDE
     Indication: Nausea
     Dosage: UNK
     Dates: start: 20220923
  5. METFORMIN [Concomitant]
     Active Substance: METFORMIN HYDROCHLORIDE
     Indication: Diabetes mellitus
     Dosage: UNK
     Dates: start: 20120101, end: 20230101
  6. OMEPRAZOLE [Concomitant]
     Active Substance: OMEPRAZOLE
     Indication: Gastrooesophageal reflux disease
     Dosage: UNK
     Dates: start: 20220919
  7. ROSUVASTATIN [Concomitant]
     Active Substance: ROSUVASTATIN
     Indication: Blood cholesterol increased
     Dosage: UNK
     Dates: start: 20220101, end: 20230101
  8. VITAMIN B12 [Concomitant]
     Active Substance: CYANOCOBALAMIN
     Indication: Hypovitaminosis
     Dosage: UNK
  9. LORATADINE [Concomitant]
     Active Substance: LORATADINE
     Indication: Hypersensitivity
     Dosage: UNK
     Dates: start: 20220101, end: 20230101
  10. MENSTRUAL COMPLETE [Concomitant]
     Active Substance: ACETAMINOPHEN\CAFFEINE\PYRILAMINE MALEATE
     Indication: Menopause
     Dosage: UNK
     Dates: start: 20220101

REACTIONS (10)
  - Impaired gastric emptying [Not Recovered/Not Resolved]
  - Cholecystectomy [Not Recovered/Not Resolved]
  - Decreased appetite [Not Recovered/Not Resolved]
  - Dyspepsia [Not Recovered/Not Resolved]
  - Nausea [Not Recovered/Not Resolved]
  - Constipation [Not Recovered/Not Resolved]
  - Vomiting [Not Recovered/Not Resolved]
  - Abdominal pain upper [Not Recovered/Not Resolved]
  - Diarrhoea [Not Recovered/Not Resolved]
  - Dehydration [Not Recovered/Not Resolved]

NARRATIVE: CASE EVENT DATE: 20220701
